FAERS Safety Report 19429122 (Version 1)
Quarter: 2021Q2

REPORT INFORMATION
  Report Type: Spontaneous
  Country: GB (occurrence: GB)
  Receive Date: 20210617
  Receipt Date: 20210617
  Transmission Date: 20210717
  Serious: Yes (Other)
  Sender: FDA-Public Use
  Company Number: GB-ACCORD-228452

PATIENT
  Age: 30 Year
  Sex: Female

DRUGS (5)
  1. ASTRAZENECA COVID?19 VACCINE [Suspect]
     Active Substance: AZD-1222
     Indication: PRODUCT USED FOR UNKNOWN INDICATION
     Route: 030
     Dates: start: 20210228
  2. AMITRIPTYLINE [Suspect]
     Active Substance: AMITRIPTYLINE
     Indication: SLEEP DISORDER
     Dates: start: 202104
  3. LANSOPRAZOLE. [Concomitant]
     Active Substance: LANSOPRAZOLE
     Indication: ABDOMINAL DISCOMFORT
  4. CODEINE [Concomitant]
     Active Substance: CODEINE
     Indication: PAIN
  5. NAPROXEN. [Concomitant]
     Active Substance: NAPROXEN
     Indication: ABDOMINAL DISCOMFORT

REACTIONS (24)
  - Abdominal discomfort [Unknown]
  - Hot flush [Unknown]
  - Weight decreased [Unknown]
  - Hypoperfusion [Unknown]
  - Hallucination [Recovered/Resolved]
  - Headache [Unknown]
  - Retching [Unknown]
  - Eructation [Unknown]
  - Pyrexia [Unknown]
  - Dizziness [Unknown]
  - Malaise [Recovered/Resolved]
  - Fatigue [Not Recovered/Not Resolved]
  - Dysarthria [Not Recovered/Not Resolved]
  - Paraesthesia [Unknown]
  - Syncope [Unknown]
  - Nausea [Unknown]
  - Chest pain [Recovered/Resolved]
  - Vision blurred [Not Recovered/Not Resolved]
  - Abdominal pain upper [Unknown]
  - Dyspepsia [Unknown]
  - Hemianaesthesia [Unknown]
  - Decreased appetite [Unknown]
  - Pallor [Unknown]
  - Chills [Unknown]

NARRATIVE: CASE EVENT DATE: 20210505
